FAERS Safety Report 4293142-5 (Version None)
Quarter: 2004Q1

REPORT INFORMATION
  Report Type: 
  Country: None (occurrence: None)
  Receive Date: 20040212
  Receipt Date: 20030602
  Transmission Date: 20041129
  Serious: Yes (Other)
  Sender: FDA-Public Use
  Company Number: US-GLAXOSMITHKLINE-A0410536A

PATIENT
  Age: 34 Year
  Sex: Female

DRUGS (1)
  1. PAXIL [Suspect]
     Route: 048
     Dates: start: 19970101

REACTIONS (8)
  - AMNESIA [None]
  - DIZZINESS [None]
  - DRUG WITHDRAWAL SYNDROME [None]
  - HYPERHIDROSIS [None]
  - NAUSEA [None]
  - NIGHTMARE [None]
  - SOMNOLENCE [None]
  - YAWNING [None]
